FAERS Safety Report 11499679 (Version 1)
Quarter: 2015Q3

REPORT INFORMATION
  Report Type: Spontaneous
  Country: US (occurrence: None)
  Receive Date: 20150911
  Receipt Date: 20150911
  Transmission Date: 20151125
  Serious: Yes (Hospitalization)
  Sender: FDA-Public Use
  Company Number: None

PATIENT
  Age: 71 Year
  Sex: Male
  Weight: 54.8 kg

DRUGS (10)
  1. OMEPRAZOLE. [Concomitant]
     Active Substance: OMEPRAZOLE
  2. DALIRESP [Suspect]
     Active Substance: ROFLUMILAST
     Indication: CHRONIC OBSTRUCTIVE PULMONARY DISEASE
     Route: 048
     Dates: start: 20150906, end: 20150907
  3. BROVANA [Concomitant]
     Active Substance: ARFORMOTEROL TARTRATE
  4. FLOVENT [Concomitant]
     Active Substance: FLUTICASONE PROPIONATE
  5. TOPROX XL [Concomitant]
  6. SIMVASTATIN. [Concomitant]
     Active Substance: SIMVASTATIN
  7. DUONEB [Concomitant]
     Active Substance: ALBUTEROL SULFATE\IPRATROPIUM BROMIDE
  8. LISINOPRIL. [Concomitant]
     Active Substance: LISINOPRIL
  9. PREDNISONE. [Concomitant]
     Active Substance: PREDNISONE
  10. ALBUTEROL MDI [Concomitant]

REACTIONS (9)
  - Malaise [None]
  - Headache [None]
  - Chest pain [None]
  - Heart rate irregular [None]
  - Decreased appetite [None]
  - Dyspnoea [None]
  - Back pain [None]
  - Drug ineffective [None]
  - Neck pain [None]

NARRATIVE: CASE EVENT DATE: 20150909
